FAERS Safety Report 26065874 (Version 1)
Quarter: 2025Q4

REPORT INFORMATION
  Report Type: Spontaneous
  Country: US (occurrence: None)
  Receive Date: 20251119
  Receipt Date: 20251119
  Transmission Date: 20260117
  Serious: No
  Sender: FDA-CTU
  Company Number: None

PATIENT

DRUGS (1)
  1. OCREVUS [Suspect]
     Active Substance: OCRELIZUMAB

REACTIONS (10)
  - Infusion related reaction [None]
  - Contusion [None]
  - Tongue disorder [None]
  - Oropharyngeal pain [None]
  - Immunodeficiency [None]
  - Scar [None]
  - Rash [None]
  - Skin haemorrhage [None]
  - Glossodynia [None]
  - Skin fragility [None]
